FAERS Safety Report 12220154 (Version 1)
Quarter: 2016Q1

REPORT INFORMATION
  Report Type: Spontaneous
  Country: US (occurrence: US)
  Receive Date: 20160330
  Receipt Date: 20160330
  Transmission Date: 20160526
  Serious: No
  Sender: FDA-Public Use
  Company Number: US-ASTRAZENECA-2016SE19814

PATIENT
  Sex: Female

DRUGS (3)
  1. SEROQUEL [Suspect]
     Active Substance: QUETIAPINE FUMARATE
     Dosage: UNKNOWN DOSE
     Route: 048
  2. RISPERDAL [Suspect]
     Active Substance: RISPERIDONE
     Dosage: UNKNOWN DOSE
     Route: 065
  3. ZYPREXA [Suspect]
     Active Substance: OLANZAPINE
     Dosage: UNKNOWN DOSE
     Route: 065

REACTIONS (6)
  - Blood glucose abnormal [Unknown]
  - Mental impairment [Unknown]
  - Dyskinesia [Unknown]
  - Lipids abnormal [Unknown]
  - Drug ineffective [Unknown]
  - Somnolence [Unknown]
